FAERS Safety Report 22659673 (Version 1)
Quarter: 2023Q2

REPORT INFORMATION
  Report Type: Spontaneous
  Country: DE (occurrence: DE)
  Receive Date: 20230630
  Receipt Date: 20230630
  Transmission Date: 20230721
  Serious: Yes (Other)
  Sender: FDA-Public Use
  Company Number: DE-TEVA-2023-DE-2899808

PATIENT
  Age: 51 Year
  Sex: Male

DRUGS (1)
  1. MOXIFLOXACIN HYDROCHLORIDE [Suspect]
     Active Substance: MOXIFLOXACIN HYDROCHLORIDE
     Indication: Animal bite
     Dosage: FORM STRENGTH: 400MILLIGRAM
     Route: 048

REACTIONS (5)
  - Persecutory delusion [Unknown]
  - Fatigue [Unknown]
  - Anxiety [Unknown]
  - Pain in extremity [Unknown]
  - Paraesthesia [Unknown]
